FAERS Safety Report 10261946 (Version 1)
Quarter: 2014Q2

REPORT INFORMATION
  Report Type: Spontaneous
  Country: RU (occurrence: RU)
  Receive Date: 20140626
  Receipt Date: 20140626
  Transmission Date: 20141212
  Serious: Yes (Death)
  Sender: FDA-Public Use
  Company Number: RU-ACTELION-A-CH2014-100891

PATIENT
  Age: 7 Year
  Sex: Male

DRUGS (3)
  1. TRACLEER [Suspect]
     Indication: PULMONARY ARTERIAL HYPERTENSION
     Dosage: 62.5 MG, BID
     Route: 048
     Dates: start: 201201, end: 201406
  2. TRACLEER [Suspect]
     Dosage: 62.5 MG, QD
     Route: 048
     Dates: start: 201105, end: 201201
  3. SILDENAFIL [Concomitant]
     Dosage: 50 MG, TID

REACTIONS (2)
  - Cardiac failure acute [Fatal]
  - Balloon atrial septostomy [Fatal]
